FAERS Safety Report 15940126 (Version 1)
Quarter: 2019Q1

REPORT INFORMATION
  Report Type: Report from Study
  Country: CA (occurrence: CA)
  Receive Date: 20190208
  Receipt Date: 20190208
  Transmission Date: 20190417
  Serious: Yes (Other)
  Sender: FDA-Public Use
  Company Number: CA-ASTRAZENECA-2019SE21582

PATIENT
  Age: 28146 Day
  Sex: Female

DRUGS (18)
  1. NABILONE [Concomitant]
     Active Substance: NABILONE
  2. CALCIUM [Concomitant]
     Active Substance: CALCIUM
  3. DILTIAZEM. [Concomitant]
     Active Substance: DILTIAZEM
  4. FASENRA [Suspect]
     Active Substance: BENRALIZUMAB
     Indication: ASTHMA
     Dosage: 30.0MG UNKNOWN
     Route: 058
     Dates: start: 20181207
  5. MAGNESIUM [Concomitant]
     Active Substance: MAGNESIUM
  6. HCTZ [Concomitant]
     Active Substance: HYDROCHLOROTHIAZIDE
  7. PREDNISONE. [Concomitant]
     Active Substance: PREDNISONE
  8. VITAMIN B12 [Concomitant]
     Active Substance: CYANOCOBALAMIN
  9. DULOXETINE. [Concomitant]
     Active Substance: DULOXETINE
  10. GLICLAZIDE [Concomitant]
     Active Substance: GLICLAZIDE
  11. ALENDRONATE [Concomitant]
     Active Substance: ALENDRONATE SODIUM
  12. TECTA [Concomitant]
     Active Substance: PANTOPRAZOLE MAGNESIUM
  13. ROSUVASTATIN. [Concomitant]
     Active Substance: ROSUVASTATIN
  14. INSULIN [Concomitant]
     Active Substance: INSULIN NOS
  15. ZOPLICONE [Concomitant]
     Active Substance: ZOPICLONE
  16. XARELTO [Concomitant]
     Active Substance: RIVAROXABAN
  17. METFORMIN [Concomitant]
     Active Substance: METFORMIN HYDROCHLORIDE
  18. SPIRONOLACTONE. [Concomitant]
     Active Substance: SPIRONOLACTONE

REACTIONS (5)
  - Dizziness [Unknown]
  - Fall [Unknown]
  - Haemoglobin decreased [Unknown]
  - Loss of consciousness [Unknown]
  - Circulatory collapse [Unknown]

NARRATIVE: CASE EVENT DATE: 20190104
